FAERS Safety Report 6160067-X (Version None)
Quarter: 2009Q2

REPORT INFORMATION
  Report Type: 
  Country: None (occurrence: None)
  Receive Date: 20090416
  Receipt Date: 20090406
  Transmission Date: 20091009
  Serious: Yes (Death)
  Sender: FDA-Public Use
  Company Number: 1000003821

PATIENT
  Age: 75 Year
  Sex: Male

DRUGS (4)
  1. MEMANTINE HCL [Suspect]
     Indication: DEMENTIA ALZHEIMER'S TYPE
     Dosage: 20 MG (20 MG, 1 IN 1 D), ORAL
     Route: 048
     Dates: start: 20050930, end: 20090126
  2. AMLODIPINE BESYLATE [Concomitant]
  3. IMIDAPRIL HYDROCHLORIDE [Concomitant]
  4. TAMSULOSIN HYDROCHLORIDE [Concomitant]

REACTIONS (8)
  - AORTIC ARTERIOSCLEROSIS [None]
  - ARTERIOSCLEROSIS CORONARY ARTERY [None]
  - CARDIAC FAILURE ACUTE [None]
  - CEREBRAL ATROPHY [None]
  - EMPHYSEMA [None]
  - LACUNAR INFARCTION [None]
  - MYOCARDIAL ISCHAEMIA [None]
  - RENAL ARTERY ARTERIOSCLEROSIS [None]
